FAERS Safety Report 12879739 (Version 2)
Quarter: 2017Q1

REPORT INFORMATION
  Report Type: Spontaneous
  Country: DE (occurrence: DE)
  Receive Date: 20161025
  Receipt Date: 20170318
  Transmission Date: 20170428
  Serious: Yes (Life-Threatening, Hospitalization, Other)
  Sender: FDA-Public Use
  Company Number: DE-ACCORD-045176

PATIENT
  Age: 79 Year
  Sex: Female
  Weight: 75 kg

DRUGS (6)
  1. ASPIRIN. [Concomitant]
     Active Substance: ASPIRIN
     Indication: PREMEDICATION
     Dosage: EVERY OTHER DAY 1-0-0
  2. RAMIPRIL. [Suspect]
     Active Substance: RAMIPRIL
     Indication: PREMEDICATION
     Dosage: STRENGTH: 5 MG, 1/2-0-0
  3. BISOPROLOL [Suspect]
     Active Substance: BISOPROLOL
     Indication: PREMEDICATION
     Dosage: STRENGTH: 5 MG, 1/2-0-0
  4. OMEPRAZOLE. [Suspect]
     Active Substance: OMEPRAZOLE
     Indication: PREMEDICATION
     Dosage: 1-0-0
  5. TRAMADOL/TRAMADOL HYDROCHLORIDE [Suspect]
     Active Substance: TRAMADOL HYDROCHLORIDE
     Indication: HEADACHE
     Dosage: AT NIGHT
  6. BROMAZEPAM [Concomitant]
     Active Substance: BROMAZEPAM
     Indication: PREMEDICATION
     Dosage: STRENGTH: 3 MG, 0-0-0-HALF

REACTIONS (3)
  - Hypoglycaemia [Recovered/Resolved]
  - Hypotension [Recovered/Resolved]
  - Loss of consciousness [None]
